FAERS Safety Report 8893956 (Version 1)
Quarter: 2012Q4

REPORT INFORMATION
  Report Type: 
  Country: CA (occurrence: CA)
  Receive Date: 20121107
  Receipt Date: 20121107
  Transmission Date: 20130627
  Serious: Yes (Other)
  Sender: FDA-Public Use
  Company Number: PHHY2007CA011612

PATIENT
  Sex: Male

DRUGS (2)
  1. SANDOSTATIN LAR [Suspect]
     Indication: CARCINOID SYNDROME
     Dosage: 30 mg, QMO
     Route: 030
     Dates: start: 19991208
  2. SANDOSTATIN LAR [Suspect]
     Dosage: 20 mg, QW4

REACTIONS (16)
  - Depression [Unknown]
  - Malaise [Unknown]
  - Vision blurred [Unknown]
  - Tachycardia [Unknown]
  - Hepatic pain [Unknown]
  - Feeling abnormal [Unknown]
  - Weight decreased [Unknown]
  - Tension [Unknown]
  - Flushing [Unknown]
  - Blood pressure increased [Unknown]
  - Amnesia [Unknown]
  - Drug ineffective [Unknown]
  - Injection site pain [Unknown]
  - Injection site discomfort [Unknown]
  - Abdominal distension [Unknown]
  - Blood glucose increased [Unknown]
